FAERS Safety Report 6162128-8 (Version None)
Quarter: 2009Q2

REPORT INFORMATION
  Report Type: 
  Country: None (occurrence: None)
  Receive Date: 20090421
  Receipt Date: 20090420
  Transmission Date: 20091009
  Serious: Yes (Life-Threatening, Hospitalization)
  Sender: FDA-Public Use
  Company Number: GB-PFIZER INC-2006131737

PATIENT

DRUGS (6)
  1. SOLU-MEDRONE [Suspect]
     Indication: TEMPORAL ARTERITIS
     Dosage: INTERVAL: EVERY MONTH
     Dates: start: 20060427
  2. PREDNISOLONE [Concomitant]
     Dosage: 10 MG, UNK
     Route: 048
     Dates: start: 20020101, end: 20061024
  3. CYCLOPHOSPHAMIDE [Concomitant]
     Indication: TEMPORAL ARTERITIS
     Route: 042
     Dates: start: 20060427
  4. ACETYLSALICYLIC ACID SRT [Concomitant]
     Route: 048
     Dates: start: 20051101
  5. SERETIDE [Concomitant]
     Route: 055
     Dates: start: 20050101
  6. SALBUTAMOL [Concomitant]
     Route: 055

REACTIONS (4)
  - BRONCHOSPASM [None]
  - HYPERSENSITIVITY [None]
  - RASH ERYTHEMATOUS [None]
  - SWELLING [None]
